FAERS Safety Report 10994540 (Version 1)
Quarter: 2015Q2

REPORT INFORMATION
  Report Type: Spontaneous
  Country: US (occurrence: None)
  Receive Date: 20150406
  Receipt Date: 20150406
  Transmission Date: 20150821
  Serious: Yes (Hospitalization, Other)
  Sender: FDA-Public Use
  Company Number: None

PATIENT
  Age: 67 Year
  Sex: Male
  Weight: 78.93 kg

DRUGS (2)
  1. DUEXIS [Suspect]
     Active Substance: FAMOTIDINE\IBUPROFEN
     Indication: ROTATOR CUFF SYNDROME
     Dosage: ONE TAB
     Route: 048
     Dates: start: 20150316, end: 20150317
  2. RESTASIS [Concomitant]
     Active Substance: CYCLOSPORINE

REACTIONS (6)
  - Loss of consciousness [None]
  - Fall [None]
  - Injury [None]
  - Mouth haemorrhage [None]
  - Contusion [None]
  - Memory impairment [None]

NARRATIVE: CASE EVENT DATE: 20150317
